FAERS Safety Report 7277658-5 (Version None)
Quarter: 2011Q1

REPORT INFORMATION
  Report Type: 
  Country: None (occurrence: None)
  Receive Date: 20110202
  Receipt Date: 20110202
  Transmission Date: 20110831
  Serious: Yes (Life-Threatening, Hospitalization)
  Sender: FDA-Public Use
  Company Number: None

PATIENT
  Age: 83 Year
  Sex: Male
  Weight: 81.6475 kg

DRUGS (1)
  1. MAXIPIME [Suspect]
     Indication: URINARY TRACT INFECTION
     Dosage: EVERY 12 HOURS IV DRIP
     Route: 041
     Dates: start: 20110113, end: 20110116

REACTIONS (13)
  - HEADACHE [None]
  - DYSPNOEA [None]
  - SWOLLEN TONGUE [None]
  - RESPIRATORY DISTRESS [None]
  - SWELLING FACE [None]
  - ALTERED STATE OF CONSCIOUSNESS [None]
  - NAUSEA [None]
  - CARDIAC ARREST [None]
  - GENERAL PHYSICAL HEALTH DETERIORATION [None]
  - FEELING ABNORMAL [None]
  - RESPIRATORY RATE INCREASED [None]
  - LETHARGY [None]
  - LOCAL SWELLING [None]
